FAERS Safety Report 18569052 (Version 1)
Quarter: 2020Q4

REPORT INFORMATION
  Report Type: Spontaneous
  Country: US (occurrence: US)
  Receive Date: 20201201
  Receipt Date: 20201201
  Transmission Date: 20210114
  Serious: Yes (Life-Threatening, Other)
  Sender: FDA-Public Use
  Company Number: None

PATIENT
  Age: 46 Year
  Sex: Female
  Weight: 76.32 kg

DRUGS (5)
  1. CELECOXIB 200MG [Suspect]
     Active Substance: CELECOXIB
     Indication: CANCER PAIN
     Dosage: ?          QUANTITY:1 TABLET(S);?
     Route: 048
     Dates: start: 20201022, end: 20201118
  2. CLONIDINE. [Concomitant]
     Active Substance: CLONIDINE
  3. OXYCODONE [Concomitant]
     Active Substance: OXYCODONE
  4. VOTRIENT [Concomitant]
     Active Substance: PAZOPANIB HYDROCHLORIDE
  5. AMLODIPINE [Concomitant]
     Active Substance: AMLODIPINE BESYLATE

REACTIONS (6)
  - Constipation [None]
  - Flatulence [None]
  - Pain [None]
  - Paralysis [None]
  - Vomiting [None]
  - Abdominal distension [None]

NARRATIVE: CASE EVENT DATE: 20201109
